FAERS Safety Report 13493524 (Version 1)
Quarter: 2017Q2

REPORT INFORMATION
  Report Type: Spontaneous
  Country: US (occurrence: US)
  Receive Date: 20170427
  Receipt Date: 20170427
  Transmission Date: 20170830
  Serious: No
  Sender: FDA-Public Use
  Company Number: US-ROCHE-1413753

PATIENT
  Sex: Male

DRUGS (1)
  1. ERIVEDGE [Suspect]
     Active Substance: VISMODEGIB
     Indication: BASAL CELL CARCINOMA
     Dosage: FOR 20 DAYS
     Route: 048
     Dates: start: 20140419, end: 2014

REACTIONS (6)
  - Dysgeusia [Unknown]
  - Ageusia [Unknown]
  - Alopecia [Not Recovered/Not Resolved]
  - Weight decreased [Unknown]
  - Muscle spasms [Unknown]
  - Insomnia [Unknown]
